FAERS Safety Report 14519687 (Version 1)
Quarter: 2018Q1

REPORT INFORMATION
  Report Type: Report from Study
  Country: None (occurrence: US)
  Receive Date: 20180212
  Receipt Date: 20180212
  Transmission Date: 20180509
  Serious: No
  Sender: FDA-Public Use
  Company Number: US-AMAG PHARMACEUTICALS, INC.-AMAG201700953

PATIENT

DRUGS (3)
  1. DHA [Concomitant]
     Active Substance: DIETARY SUPPLEMENT
     Indication: PREGNANCY
     Dosage: 250 MG, QD
     Route: 048
     Dates: start: 20161215
  2. VITAFOL [Concomitant]
     Indication: PREGNANCY
     Dosage: VIT 65MG/IRON 1MG, 1 TABET DAILY
     Route: 048
     Dates: start: 20161215
  3. MAKENA [Suspect]
     Active Substance: HYDROXYPROGESTERONE CAPROATE
     Indication: PRODUCT USED FOR UNKNOWN INDICATION
     Dosage: UNK
     Route: 065
     Dates: start: 20170309

REACTIONS (5)
  - Depressed mood [Recovered/Resolved]
  - Obesity [Not Recovered/Not Resolved]
  - Pain [Recovered/Resolved]
  - Breech presentation [Not Recovered/Not Resolved]
  - Vaginal haemorrhage [Recovered/Resolved]

NARRATIVE: CASE EVENT DATE: 201703
